FAERS Safety Report 12376052 (Version 1)
Quarter: 2016Q2

REPORT INFORMATION
  Report Type: Spontaneous
  Country: FR (occurrence: FR)
  Receive Date: 20160517
  Receipt Date: 20160517
  Transmission Date: 20160815
  Serious: Yes (Hospitalization, Other)
  Sender: FDA-Public Use
  Company Number: FR-PFIZER INC-2016244994

PATIENT
  Age: 18 Year
  Sex: Female

DRUGS (5)
  1. CERUBIDINE [Suspect]
     Active Substance: DAUNORUBICIN HYDROCHLORIDE
     Indication: ACUTE MYELOID LEUKAEMIA
     Dosage: 148 MG, 1X/DAY
     Route: 042
     Dates: start: 20160311, end: 20160313
  2. VESANOID [Concomitant]
     Active Substance: TRETINOIN
     Indication: ACUTE MYELOID LEUKAEMIA
     Dosage: 10 MG, UNK
     Route: 048
     Dates: start: 20160310, end: 20160311
  3. FASTURTEC [Concomitant]
     Active Substance: RASBURICASE
     Indication: ACUTE MYELOID LEUKAEMIA
     Dosage: 7.5 MG, SINGLE
     Route: 042
     Dates: start: 20160311, end: 20160311
  4. ARACYTINE [Suspect]
     Active Substance: CYTARABINE
     Indication: ACUTE MYELOID LEUKAEMIA
     Dosage: 328 MG, 1X/DAY
     Route: 042
     Dates: start: 20160311, end: 20160313
  5. HEPARINE SODIQUE PANPHARMA [Concomitant]
     Active Substance: HEPARIN SODIUM
     Dosage: UNK
     Route: 042
     Dates: start: 201603

REACTIONS (3)
  - Hypotension [Recovered/Resolved]
  - Erythema [Recovered/Resolved]
  - Oxygen saturation decreased [Recovered/Resolved]

NARRATIVE: CASE EVENT DATE: 20160313
